FAERS Safety Report 17349745 (Version 1)
Quarter: 2020Q1

REPORT INFORMATION
  Report Type: Spontaneous
  Country: US (occurrence: US)
  Receive Date: 20200129
  Receipt Date: 20200129
  Transmission Date: 20200409
  Serious: No
  Sender: FDA-Public Use
  Company Number: None

PATIENT
  Age: 53 Year
  Sex: Female

DRUGS (6)
  1. BUPRENORPHINE/NALAXONE TABLETS [Suspect]
     Active Substance: BUPRENORPHINE HYDROCHLORIDE\NALOXONE HYDROCHLORIDE
     Indication: DRUG DEPENDENCE
     Route: 048
     Dates: start: 20191001, end: 20200129
  2. BUPRENORPHINE-NALOXONE .052 MG TAB [Concomitant]
     Dates: start: 20190301, end: 20190409
  3. BUPRENORPHINE-NALOXONE 8-2 MG TAB [Concomitant]
     Dates: start: 20190409, end: 20191007
  4. BUPRENORPHINE-NALOXONE 8-2 MG TAB [Concomitant]
     Dates: start: 20130709, end: 20190301
  5. BUPRENORPHINE-NALOXONE .052 MG TAB [Concomitant]
     Dates: start: 20191008, end: 20200129
  6. SUBOXONE [Suspect]
     Active Substance: BUPRENORPHINE HYDROCHLORIDE\NALOXONE HYDROCHLORIDE

REACTIONS (1)
  - Withdrawal syndrome [None]

NARRATIVE: CASE EVENT DATE: 20190128
